FAERS Safety Report 6912714-X (Version None)
Quarter: 2010Q3

REPORT INFORMATION
  Report Type: 
  Country: None (occurrence: None)
  Receive Date: 20100806
  Receipt Date: 20081021
  Transmission Date: 20110219
  Serious: No
  Sender: FDA-Public Use
  Company Number: US-PFIZER INC-2008073299

PATIENT
  Sex: Female
  Weight: 63.6 kg

DRUGS (6)
  1. DETROL LA [Suspect]
     Indication: HYPERTONIC BLADDER
     Route: 048
     Dates: start: 20080827
  2. DILANTIN [Concomitant]
  3. PRIMIDONE [Concomitant]
  4. KEPPRA [Concomitant]
  5. LISINOPRIL [Concomitant]
     Indication: CARDIAC DISORDER
  6. KLOR-CON [Concomitant]

REACTIONS (3)
  - BLADDER DISORDER [None]
  - PARAESTHESIA ORAL [None]
  - TONGUE DRY [None]
